FAERS Safety Report 5204822-9 (Version None)
Quarter: 2007Q1

REPORT INFORMATION
  Report Type: 
  Country: None (occurrence: None)
  Receive Date: 20070110
  Receipt Date: 20060726
  Transmission Date: 20070707
  Serious: Yes (Hospitalization)
  Sender: FDA-Public Use
  Company Number: US-BRISTOL-MYERS SQUIBB COMPANY-13455407

PATIENT
  Age: 48 Year
  Sex: Female
  Weight: 65 kg

DRUGS (5)
  1. ABILIFY [Suspect]
     Indication: BIPOLAR DISORDER
     Route: 048
     Dates: start: 20060301
  2. ABILIFY [Suspect]
     Indication: SUICIDAL IDEATION
     Route: 048
     Dates: start: 20060301
  3. LITHOBID [Concomitant]
  4. LAMICTAL [Concomitant]
  5. SEROQUEL [Concomitant]

REACTIONS (8)
  - CHEST DISCOMFORT [None]
  - CHEST PAIN [None]
  - LYMPHADENOPATHY [None]
  - PANIC ATTACK [None]
  - PHARYNGEAL OEDEMA [None]
  - SWOLLEN TONGUE [None]
  - TINNITUS [None]
  - WHEEZING [None]
